FAERS Safety Report 5236389-3 (Version None)
Quarter: 2007Q1

REPORT INFORMATION
  Report Type: 
  Country: None (occurrence: None)
  Receive Date: 20070212
  Receipt Date: 20070131
  Transmission Date: 20070707
  Serious: Yes (Hospitalization)
  Sender: FDA-Public Use
  Company Number: FR-PFIZER INC-2007009172

PATIENT
  Age: 58 Year
  Sex: Female

DRUGS (5)
  1. ZAVEDOS POWDER, STERILE [Suspect]
     Indication: LEUKAEMIA
     Route: 042
     Dates: start: 20061120, end: 20061123
  2. CYTARABINE [Suspect]
     Indication: LEUKAEMIA
     Route: 042
     Dates: start: 20061120, end: 20061126
  3. AMIKACIN [Suspect]
  4. TAZOCILLINE [Suspect]
     Route: 042
  5. VANCOMYCIN HYDROCHLORIDE [Suspect]

REACTIONS (5)
  - PRURITUS [None]
  - PURPURA [None]
  - RASH [None]
  - RASH PAPULAR [None]
  - URTICARIA [None]
